FAERS Safety Report 7034408-5 (Version None)
Quarter: 2010Q4

REPORT INFORMATION
  Report Type: 
  Country: None (occurrence: None)
  Receive Date: 20101008
  Receipt Date: 20100927
  Transmission Date: 20110411
  Serious: Yes (Disabling)
  Sender: FDA-Public Use
  Company Number: PHHY2010CA64407

PATIENT
  Sex: Female

DRUGS (5)
  1. ALISKIREN ALI+ [Suspect]
     Indication: HYPERTENSION
     Dosage: 150 MG, UNK
     Route: 048
     Dates: start: 20100610, end: 20100830
  2. DIOVAN [Concomitant]
     Dosage: 160/12.5 MG, UNK
  3. LOPRESSOR [Concomitant]
  4. CARDIZEM [Concomitant]
     Dosage: 240, UNK
  5. ZOCOR [Concomitant]

REACTIONS (1)
  - NAUSEA [None]
